FAERS Safety Report 25090956 (Version 1)
Quarter: 2025Q1

REPORT INFORMATION
  Report Type: Spontaneous
  Country: TW (occurrence: TW)
  Receive Date: 20250318
  Receipt Date: 20250318
  Transmission Date: 20250409
  Serious: Yes (Hospitalization, Other)
  Sender: UCB
  Company Number: TW-UCBSA-2025014848

PATIENT
  Age: 7 Year
  Sex: Male

DRUGS (20)
  1. KEPPRA [Suspect]
     Active Substance: LEVETIRACETAM
     Indication: Epilepsy
     Dosage: 20 MILLIGRAM/KILOGRAM, 2X/DAY (BID)
     Dates: start: 20220521
  2. KEPPRA [Suspect]
     Active Substance: LEVETIRACETAM
     Dosage: 30 MILLIGRAM/KILOGRAM, 450 MG BID (30MG/KG/DAY)
     Dates: start: 20220525
  3. KEPPRA [Suspect]
     Active Substance: LEVETIRACETAM
     Dosage: KEPPRA 450 MG BID (30MG/KG/DAY)
     Dates: start: 20220601
  4. KEPPRA [Suspect]
     Active Substance: LEVETIRACETAM
     Dosage: 500 MILLIGRAM, 2X/DAY (BID)
     Dates: start: 20220727
  5. KEPPRA [Suspect]
     Active Substance: LEVETIRACETAM
     Dosage: KEPPRA 1.5# (500MG) BID.
     Dates: start: 20220727
  6. KEPPRA [Suspect]
     Active Substance: LEVETIRACETAM
     Dosage: TAPPER KEPPRA 1.5# BID ONE WEEK}1# BID ONE WEEK, 2X/DAY (BID)
     Dates: start: 20221222
  7. KEPPRA [Suspect]
     Active Substance: LEVETIRACETAM
     Dates: start: 20221229, end: 2023
  8. BRIVIACT [Suspect]
     Active Substance: BRIVARACETAM
     Indication: Epilepsy
     Dosage: 50 MILLIGRAM, 2X/DAY (BID)
     Dates: start: 20221222
  9. BRIVIACT [Suspect]
     Active Substance: BRIVARACETAM
     Dosage: 0.5#, 2X/DAY (BID)
     Dates: start: 20221229
  10. BRIVIACT [Suspect]
     Active Substance: BRIVARACETAM
     Dosage: 100 MILLIGRAM, 2X/DAY (BID)
     Dates: start: 20221229
  11. BRIVIACT [Suspect]
     Active Substance: BRIVARACETAM
     Dosage: 50 MILLIGRAM, 2X/DAY (BID)
     Dates: start: 20230711
  12. BRIVIACT [Suspect]
     Active Substance: BRIVARACETAM
     Dosage: 100 MILLIGRAM, 2X/DAY (BID)
     Dates: start: 20230922
  13. LAMICTAL [Concomitant]
     Active Substance: LAMOTRIGINE
     Indication: Product used for unknown indication
     Dosage: 50 MILLIGRAM, 2X/DAY (BID)
     Dates: start: 20221117
  14. LAMICTAL [Concomitant]
     Active Substance: LAMOTRIGINE
     Dosage: 1#, 2X/DAY (BID)
     Dates: start: 20221229
  15. LAMICTAL [Concomitant]
     Active Substance: LAMOTRIGINE
     Dosage: 2#, 2X/DAY (BID)
     Dates: start: 20240605
  16. Methydur [Concomitant]
     Indication: Product used for unknown indication
     Dosage: 22 MILLIGRAM, ONCE DAILY (QD)
     Dates: start: 20230401
  17. DIAZEPAM [Concomitant]
     Active Substance: DIAZEPAM
     Indication: Product used for unknown indication
     Dates: start: 20220521
  18. MIDAZOLAM HYDROCHLORIDE [Concomitant]
     Active Substance: MIDAZOLAM HYDROCHLORIDE
     Indication: Product used for unknown indication
  19. CEFTAZIDIME [Concomitant]
     Active Substance: CEFTAZIDIME
     Indication: Product used for unknown indication
  20. TOPAMAX [Concomitant]
     Active Substance: TOPIRAMATE
     Indication: Product used for unknown indication
     Dates: start: 20240828

REACTIONS (24)
  - Epilepsy [Recovering/Resolving]
  - Behaviour disorder [Recovering/Resolving]
  - Hallucination [Recovering/Resolving]
  - Generalised tonic-clonic seizure [Recovering/Resolving]
  - Encephalitis autoimmune [Recovering/Resolving]
  - Encephalitis viral [Recovering/Resolving]
  - Pachygyria [Recovering/Resolving]
  - Altered state of consciousness [Recovering/Resolving]
  - Drooling [Recovering/Resolving]
  - Muscle twitching [Recovering/Resolving]
  - Inappropriate affect [Recovering/Resolving]
  - Agitation [Recovering/Resolving]
  - Confusional state [Recovering/Resolving]
  - Amnesia [Recovering/Resolving]
  - Personality change [Recovering/Resolving]
  - Mood swings [Recovering/Resolving]
  - Nausea [Recovering/Resolving]
  - Eye movement disorder [Recovering/Resolving]
  - Headache [Unknown]
  - Vision blurred [Recovering/Resolving]
  - Aura [Recovering/Resolving]
  - Dizziness [Unknown]
  - Oppositional defiant disorder [Recovering/Resolving]
  - Off label use [Unknown]

NARRATIVE: CASE EVENT DATE: 20220524
